FAERS Safety Report 24423883 (Version 1)
Quarter: 2024Q4

REPORT INFORMATION
  Report Type: Spontaneous
  Country: US (occurrence: US)
  Receive Date: 20241010
  Receipt Date: 20241010
  Transmission Date: 20250114
  Serious: Yes (Other)
  Sender: CSL BEHRING
  Company Number: US-BEH-2024181059

PATIENT

DRUGS (2)
  1. HIZENTRA [Suspect]
     Active Substance: HUMAN IMMUNOGLOBULIN G
     Dosage: 60 ML, QW (ON WEDNESDAYS)
     Route: 065
  2. HIZENTRA [Suspect]
     Active Substance: HUMAN IMMUNOGLOBULIN G
     Dosage: 60 ML, QW (ON WEDNESDAYS)
     Route: 065

REACTIONS (4)
  - Neuropathy peripheral [Unknown]
  - Systemic lupus erythematosus [Unknown]
  - Sticky skin [Unknown]
  - Acne [Recovered/Resolved]
